FAERS Safety Report 14251467 (Version 2)
Quarter: 2017Q4

REPORT INFORMATION
  Report Type: Report from Study
  Country: US (occurrence: US)
  Receive Date: 20171205
  Receipt Date: 20171221
  Transmission Date: 20180321
  Serious: Yes (Hospitalization)
  Sender: FDA-Public Use
  Company Number: US-ACTELION-A-US2017-163515

PATIENT
  Age: 75 Year
  Sex: Male
  Weight: 86.17 kg

DRUGS (13)
  1. UPTRAVI [Suspect]
     Active Substance: SELEXIPAG
     Indication: PULMONARY ARTERIAL HYPERTENSION
     Dosage: 800 MCG, BID
     Route: 048
  2. NEURONTIN [Concomitant]
     Active Substance: GABAPENTIN
  3. DEMADEX [Concomitant]
     Active Substance: TORSEMIDE
  4. WARFARIN [Concomitant]
     Active Substance: WARFARIN
  5. ZYLOPRIM [Concomitant]
     Active Substance: ALLOPURINOL
  6. LIPITOR [Concomitant]
     Active Substance: ATORVASTATIN CALCIUM
  7. ULTRAM [Concomitant]
     Active Substance: TRAMADOL HYDROCHLORIDE
  8. SYNTHROID [Concomitant]
     Active Substance: LEVOTHYROXINE SODIUM
  9. PACERONE [Concomitant]
     Active Substance: AMIODARONE HYDROCHLORIDE
  10. TYLENOL [Concomitant]
     Active Substance: ACETAMINOPHEN
  11. ADCIRCA [Concomitant]
     Active Substance: TADALAFIL
  12. XANAX [Concomitant]
     Active Substance: ALPRAZOLAM
  13. PEPCID [Concomitant]
     Active Substance: FAMOTIDINE

REACTIONS (4)
  - Blood glucose abnormal [Recovering/Resolving]
  - Drug dose omission [Unknown]
  - Asthenia [Unknown]
  - Renal disorder [Recovering/Resolving]
